FAERS Safety Report 14815277 (Version 2)
Quarter: 2018Q2

REPORT INFORMATION
  Report Type: Spontaneous
  Country: US (occurrence: US)
  Receive Date: 20180426
  Receipt Date: 20180507
  Transmission Date: 20180711
  Serious: Yes (Other)
  Sender: FDA-Public Use
  Company Number: US-COOPERSURGICAL, INC.-US-2018CPS000341

PATIENT

DRUGS (2)
  1. SPIRONOLACTONE. [Concomitant]
     Active Substance: SPIRONOLACTONE
     Indication: PRODUCT USED FOR UNKNOWN INDICATION
     Dosage: UNK
     Route: 065
  2. PARAGARD T 380A [Suspect]
     Active Substance: COPPER
     Indication: CONTRACEPTION
     Dosage: UNK
     Route: 015
     Dates: start: 20100710, end: 20180405

REACTIONS (8)
  - Pain [Recovered/Resolved]
  - Dysmenorrhoea [Recovered/Resolved]
  - Foreign body in reproductive tract [Not Recovered/Not Resolved]
  - Device breakage [Unknown]
  - Complication of device removal [Not Recovered/Not Resolved]
  - Device dislocation [Recovered/Resolved]
  - Device chemical property issue [Unknown]
  - Embedded device [Not Recovered/Not Resolved]

NARRATIVE: CASE EVENT DATE: 20180405
